FAERS Safety Report 25707770 (Version 1)
Quarter: 2025Q3

REPORT INFORMATION
  Report Type: Spontaneous
  Country: EU (occurrence: EU)
  Receive Date: 20250820
  Receipt Date: 20250820
  Transmission Date: 20251020
  Serious: Yes (Hospitalization)
  Sender: MYLAN
  Company Number: None

PATIENT
  Age: 92 Year
  Sex: Female
  Weight: 53 kg

DRUGS (9)
  1. ALPRAZOLAM [Suspect]
     Active Substance: ALPRAZOLAM
     Indication: Mixed anxiety and depressive disorder
  2. ESCITALOPRAM [Suspect]
     Active Substance: ESCITALOPRAM OXALATE
     Indication: Insomnia
     Dosage: 10 MILLIGRAM, QD (1-0-0)
     Dates: start: 20250601, end: 20250713
  3. ZOPICLONE [Suspect]
     Active Substance: ZOPICLONE
     Indication: Mixed anxiety and depressive disorder
     Dosage: 7.5 MILLIGRAM, QD (7.5 MG 0-0-1 DOSAGE REDUCTION THEREAFTER)
     Dates: start: 20250601
  4. PANTOPRAZOLE [Suspect]
     Active Substance: PANTOPRAZOLE
     Indication: Abdominal pain upper
     Dosage: 20 MILLIGRAM, QD (1-0-0)
     Dates: start: 20250530, end: 20250715
  5. MIRTAZAPINE [Suspect]
     Active Substance: MIRTAZAPINE
     Indication: Mixed anxiety and depressive disorder
     Dosage: 45 MILLIGRAM, QD (45 MG 0-0-1 DOSAGE REDUCTION TO 30 MG)
     Dates: start: 20250604
  6. MIRTAZAPINE [Suspect]
     Active Substance: MIRTAZAPINE
     Dosage: 30 MILLIGRAM, QD
  7. RISPERDAL [Suspect]
     Active Substance: RISPERIDONE
     Indication: Mixed anxiety and depressive disorder
     Dosage: 0.75 MILLIGRAM, QD (0.5 MG MORNING AND 0.25 MG EVENING)
     Dates: start: 20250530, end: 20250711
  8. XARELTO [Concomitant]
     Active Substance: RIVAROXABAN
  9. LEVOTHYROXINE [Concomitant]
     Active Substance: LEVOTHYROXINE

REACTIONS (1)
  - Pancreatitis [Recovering/Resolving]

NARRATIVE: CASE EVENT DATE: 20250705
